FAERS Safety Report 12238847 (Version 4)
Quarter: 2016Q2

REPORT INFORMATION
  Report Type: Spontaneous
  Country: JP (occurrence: JP)
  Receive Date: 20160405
  Receipt Date: 20160517
  Transmission Date: 20160815
  Serious: Yes (Death, Hospitalization)
  Sender: FDA-Public Use
  Company Number: JP-B.I. PHARMACEUTICALS,INC./RIDGEFIELD-2016-BI-19826NB

PATIENT
  Age: 91 Year
  Sex: Male

DRUGS (4)
  1. MICARDIS [Suspect]
     Active Substance: TELMISARTAN
     Indication: HYPERTENSION
     Dosage: 40 MG
     Route: 048
     Dates: end: 20160323
  2. GENINAX [Suspect]
     Active Substance: GARENOXACIN MESYLATE
     Indication: TONSILLITIS
     Dosage: 400 MG
     Route: 048
     Dates: start: 20160318, end: 20160323
  3. PL [Concomitant]
     Active Substance: ACETAMINOPHEN\CAFFEINE\PROMETHAZINE\SALICYLAMIDE
     Indication: TONSILLITIS
     Dosage: 3 G
     Route: 048
     Dates: start: 20160318, end: 20160323
  4. NATRIX [Concomitant]
     Active Substance: INDAPAMIDE
     Indication: HYPERTENSION
     Dosage: 1 MG
     Route: 048
     Dates: end: 20160323

REACTIONS (3)
  - Aspergillus infection [Fatal]
  - Bronchitis [Unknown]
  - Toxic epidermal necrolysis [Fatal]

NARRATIVE: CASE EVENT DATE: 20160318
